FAERS Safety Report 21436181 (Version 2)
Quarter: 2022Q4

REPORT INFORMATION
  Report Type: Other
  Country: US (occurrence: None)
  Receive Date: 20221010
  Receipt Date: 20221213
  Transmission Date: 20230113
  Serious: Yes (Hospitalization)
  Sender: FDA-Public Use
  Company Number: US-ROCHE-3191666

PATIENT
  Age: 30 Year
  Sex: Female
  Weight: 149.82 kg

DRUGS (1)
  1. OCREVUS [Suspect]
     Active Substance: OCRELIZUMAB
     Indication: Relapsing-remitting multiple sclerosis
     Dosage: DATE OF TREATMENT : 09/JUL/2022
     Route: 042
     Dates: start: 201911

REACTIONS (8)
  - COVID-19 pneumonia [Recovered/Resolved]
  - Mobility decreased [Unknown]
  - Illness [Unknown]
  - Sepsis [Unknown]
  - Nasal congestion [Recovered/Resolved]
  - Cough [Not Recovered/Not Resolved]
  - Productive cough [Recovering/Resolving]
  - Headache [Recovered/Resolved]

NARRATIVE: CASE EVENT DATE: 20210101
